FAERS Safety Report 14950725 (Version 2)
Quarter: 2018Q3

REPORT INFORMATION
  Report Type: Spontaneous
  Country: GR (occurrence: GR)
  Receive Date: 20180530
  Receipt Date: 20180822
  Transmission Date: 20181010
  Serious: Yes (Hospitalization, Other)
  Sender: FDA-Public Use
  Company Number: PHHY2018GR007474

PATIENT
  Age: 64 Year
  Sex: Female

DRUGS (3)
  1. TASIGNA [Suspect]
     Active Substance: NILOTINIB
     Indication: CHRONIC MYELOID LEUKAEMIA
     Dosage: 300 MG, BID (150 MG X 2, TWICE DAILY)
     Route: 065
     Dates: start: 20160621
  2. TASIGNA [Suspect]
     Active Substance: NILOTINIB
     Dosage: UNK
     Route: 065
     Dates: start: 201804, end: 201806
  3. T4 [Concomitant]
     Active Substance: LEVOTHYROXINE
     Indication: HYPOTHYROIDISM
     Dosage: 50 MG, UNK
     Route: 065

REACTIONS (7)
  - Urinary tract infection [Recovered/Resolved]
  - Back pain [Unknown]
  - Transaminases increased [Unknown]
  - Bone pain [Recovering/Resolving]
  - Retroperitoneal fibrosis [Recovering/Resolving]
  - Ureteric obstruction [Recovering/Resolving]
  - Hepatotoxicity [Recovered/Resolved]

NARRATIVE: CASE EVENT DATE: 201608
